FAERS Safety Report 23694499 (Version 1)
Quarter: 2024Q2

REPORT INFORMATION
  Report Type: Spontaneous
  Country: NL (occurrence: NL)
  Receive Date: 20240401
  Receipt Date: 20240401
  Transmission Date: 20240716
  Serious: Yes (Hospitalization)
  Sender: FDA-Public Use
  Company Number: None

PATIENT
  Age: 72 Year
  Sex: Female
  Weight: 63 kg

DRUGS (1)
  1. CELECOXIB [Suspect]
     Active Substance: CELECOXIB
     Indication: Inflammation
     Dosage: CELECOXIB  / BRAND NAME NOT SPECIFIED
     Route: 065
     Dates: start: 20240227, end: 20240229

REACTIONS (1)
  - Gastric haemorrhage [Recovered/Resolved]
